FAERS Safety Report 12987948 (Version 2)
Quarter: 2021Q3

REPORT INFORMATION
  Report Type: Report from Study
  Country: US (occurrence: US)
  Receive Date: 20161130
  Receipt Date: 20210904
  Transmission Date: 20211014
  Serious: Yes (Hospitalization, Other)
  Sender: FDA-Public Use
  Company Number: US-BAXALTA-2016BLT008577

PATIENT
  Sex: Female
  Weight: 91 kg

DRUGS (27)
  1. HUMAN NORMAL IMMUNOGLOBULIN; LIQUID [Suspect]
     Active Substance: HUMAN IMMUNOGLOBULIN G
     Dosage: 10 GRAM, 1/WEEK
     Route: 058
     Dates: start: 2013
  2. CUVITRU [Suspect]
     Active Substance: HUMAN IMMUNOGLOBULIN G
     Indication: IMMUNODEFICIENCY COMMON VARIABLE
     Dosage: 10 GRAM, 1/WEEK
     Route: 058
     Dates: start: 20181005
  3. DIPHENHYDRAMINE. [Concomitant]
     Active Substance: DIPHENHYDRAMINE
  4. LMX [Concomitant]
  5. SYMBICORT [Concomitant]
     Active Substance: BUDESONIDE\FORMOTEROL FUMARATE DIHYDRATE
  6. HUMAN NORMAL IMMUNOGLOBULIN; LIQUID [Suspect]
     Active Substance: HUMAN IMMUNOGLOBULIN G
     Indication: PRIMARY IMMUNODEFICIENCY SYNDROME
     Dosage: UNK
     Route: 065
  7. HYDROXYCHLOROQUINE [Concomitant]
     Active Substance: HYDROXYCHLOROQUINE
  8. ORENCIA [Concomitant]
     Active Substance: ABATACEPT
  9. PLAQUENIL                          /00072602/ [Concomitant]
     Active Substance: HYDROXYCHLOROQUINE DIPHOSPHATE
     Indication: RHEUMATOID ARTHRITIS
  10. PREDNISONE. [Concomitant]
     Active Substance: PREDNISONE
     Indication: SYSTEMIC LUPUS ERYTHEMATOSUS
     Dosage: UNK
     Route: 065
  11. DULOXETINE. [Concomitant]
     Active Substance: DULOXETINE
  12. FUROSEMIDE. [Concomitant]
     Active Substance: FUROSEMIDE
  13. OMEPRAZOLE. [Concomitant]
     Active Substance: OMEPRAZOLE
  14. GABAPENTIN. [Concomitant]
     Active Substance: GABAPENTIN
  15. ONDASETRON [Concomitant]
     Active Substance: ONDANSETRON
  16. EPINEPHRINE. [Concomitant]
     Active Substance: EPINEPHRINE
  17. TIZANIDINE. [Concomitant]
     Active Substance: TIZANIDINE
  18. PREDNISONE. [Concomitant]
     Active Substance: PREDNISONE
     Indication: RHEUMATOID ARTHRITIS
  19. PLAQUENIL                          /00072602/ [Concomitant]
     Active Substance: HYDROXYCHLOROQUINE DIPHOSPHATE
     Indication: SYSTEMIC LUPUS ERYTHEMATOSUS
     Dosage: UNK
     Route: 065
  20. RITUXAN [Suspect]
     Active Substance: RITUXIMAB
     Indication: SYSTEMIC LUPUS ERYTHEMATOSUS
     Dosage: EVERY 4 MONTHS
     Route: 042
     Dates: start: 201508
  21. ACETAMINOPHEN. [Concomitant]
     Active Substance: ACETAMINOPHEN
  22. ZYPREXA [Concomitant]
     Active Substance: OLANZAPINE
  23. IBUPROFEN. [Concomitant]
     Active Substance: IBUPROFEN
  24. MONTELUKAST [Concomitant]
     Active Substance: MONTELUKAST SODIUM
  25. METOPROLOL. [Concomitant]
     Active Substance: METOPROLOL
  26. RITUXAN [Suspect]
     Active Substance: RITUXIMAB
     Indication: RHEUMATOID ARTHRITIS
  27. ALBUTEROL. [Concomitant]
     Active Substance: ALBUTEROL

REACTIONS (5)
  - Pleurisy [Unknown]
  - Cellulitis orbital [Recovered/Resolved]
  - Nephrolithiasis [Recovering/Resolving]
  - Pneumonia [Recovered/Resolved]
  - Urinary tract infection [Recovering/Resolving]

NARRATIVE: CASE EVENT DATE: 2016
